FAERS Safety Report 11419583 (Version 2)
Quarter: 2015Q3

REPORT INFORMATION
  Report Type: Spontaneous
  Country: IT (occurrence: IT)
  Receive Date: 20150826
  Receipt Date: 20150901
  Transmission Date: 20151125
  Serious: Yes (Hospitalization)
  Sender: FDA-Public Use
  Company Number: IT-PFIZER INC-2015278380

PATIENT
  Age: 55 Year
  Sex: Female

DRUGS (4)
  1. TAVOR [Suspect]
     Active Substance: LORAZEPAM
     Dosage: 2.5 MG, 1X/DAY
  2. VENLAFAXINE [Concomitant]
     Active Substance: VENLAFAXINE HYDROCHLORIDE
     Dosage: UNK
  3. GABAPENTIN. [Suspect]
     Active Substance: GABAPENTIN
     Dosage: 15 G, SINGLE
     Route: 048
     Dates: start: 20150702, end: 20150702
  4. TAVOR [Suspect]
     Active Substance: LORAZEPAM
     Dosage: 22.5 MG, SINGLE
     Route: 048
     Dates: start: 20150702, end: 20150702

REACTIONS (3)
  - Drug abuse [Unknown]
  - Intentional self-injury [Unknown]
  - Intentional overdose [Unknown]

NARRATIVE: CASE EVENT DATE: 20150702
